FAERS Safety Report 6956470 (Version 18)
Quarter: 2013Q3

REPORT INFORMATION
  Report Type: Spontaneous
  Country: US (occurrence: US)
  Receive Date: 20090331
  Receipt Date: 20130926
  Transmission Date: 20140515
  Serious: Yes (Other)
  Sender: FDA-Public Use
  Company Number: PHEH2009US03018

PATIENT
  Age: 81 Year
  Sex: Male

DRUGS (20)
  1. ZOMETA [Suspect]
     Indication: HYPERCALCAEMIA OF MALIGNANCY
     Dosage: 4 MG,
     Route: 042
  2. ZOMETA [Suspect]
     Indication: PLASMA CELL MYELOMA
  3. THALIDOMIDE [Suspect]
  4. REVLIMID [Concomitant]
  5. DECADRON [Concomitant]
  6. LISINOPRIL [Concomitant]
  7. AMBIEN [Concomitant]
  8. ATENOLOL [Concomitant]
  9. RADIOTHERAPY [Concomitant]
  10. ARANESP [Concomitant]
  11. LASIX [Concomitant]
  12. PENICILLIN ^GRUNENTHAL^ [Concomitant]
  13. PANTOPRAZOLE [Concomitant]
     Dosage: 40 MG, QD
     Route: 048
  14. TRIAMCINOLONE ACETONIDE [Concomitant]
  15. LYRICA [Concomitant]
     Dosage: 75 MG, QD
     Route: 048
  16. RANITIDINE [Concomitant]
     Dosage: 150 MG, QD
  17. WARFARIN [Concomitant]
  18. OXYCODONE [Concomitant]
  19. KLOR-CON [Concomitant]
  20. TOPROL XL [Concomitant]

REACTIONS (111)
  - Transient ischaemic attack [Unknown]
  - Spinal osteoarthritis [Unknown]
  - Muscle spasms [Unknown]
  - Osteonecrosis of jaw [Unknown]
  - Deformity [Unknown]
  - Pain [Unknown]
  - Infection [Unknown]
  - Anxiety [Unknown]
  - Primary sequestrum [Unknown]
  - Erythema [Unknown]
  - Exposed bone in jaw [Unknown]
  - Physical disability [Unknown]
  - Emotional distress [Unknown]
  - Pain in jaw [Unknown]
  - Pancytopenia [Unknown]
  - Anaemia [Unknown]
  - Neuropathy peripheral [Unknown]
  - Hypoaesthesia [Unknown]
  - Sensory loss [Unknown]
  - Spinal compression fracture [Unknown]
  - Haemoptysis [Unknown]
  - Cardiomegaly [Unknown]
  - Osteopenia [Unknown]
  - Ataxia [Unknown]
  - Chronic obstructive pulmonary disease [Unknown]
  - Intervertebral disc degeneration [Unknown]
  - Bone pain [Unknown]
  - Pleural effusion [Unknown]
  - Cardiac failure congestive [Unknown]
  - Osteolysis [Unknown]
  - Osteoarthritis [Unknown]
  - Arthralgia [Unknown]
  - Malignant melanoma [Unknown]
  - Second primary malignancy [Unknown]
  - Cataract [Unknown]
  - Cardiomyopathy [Unknown]
  - Hypertension [Unknown]
  - Large intestine polyp [Unknown]
  - Genital herpes [Recovered/Resolved]
  - Haematochezia [Unknown]
  - Left ventricular hypertrophy [Unknown]
  - Rib fracture [Unknown]
  - Pulmonary hypertension [Unknown]
  - Aortic valve incompetence [Unknown]
  - Mitral valve incompetence [Unknown]
  - Tricuspid valve incompetence [Unknown]
  - Fluid overload [Unknown]
  - Irritable bowel syndrome [Unknown]
  - Rectal haemorrhage [Unknown]
  - Arteriosclerosis [Unknown]
  - Skin ulcer [Unknown]
  - Neuroma [Unknown]
  - Onychomycosis [Unknown]
  - Speech disorder [Recovered/Resolved]
  - Peripheral vascular disorder [Unknown]
  - Renal cell carcinoma [Unknown]
  - Prothrombin time prolonged [Unknown]
  - Dermatitis [Unknown]
  - Seborrhoeic keratosis [Unknown]
  - Peptic ulcer [Unknown]
  - Oedema peripheral [Unknown]
  - Constipation [Unknown]
  - Dysarthria [Unknown]
  - Diverticulum intestinal [Unknown]
  - Bradycardia [Unknown]
  - Hypokinesia [Unknown]
  - Chest discomfort [Unknown]
  - Sciatica [Unknown]
  - Upper respiratory tract infection [Unknown]
  - Osteitis [Unknown]
  - Scoliosis [Unknown]
  - Oropharyngeal pain [Unknown]
  - Pyrexia [Unknown]
  - Injury [Unknown]
  - Chest pain [Unknown]
  - Chronic sinusitis [Unknown]
  - Dysphagia [Unknown]
  - Insomnia [Unknown]
  - Rectal ulcer [Recovered/Resolved]
  - Fatigue [Unknown]
  - Dyspnoea exertional [Unknown]
  - Conjunctival haemorrhage [Unknown]
  - Pain in extremity [Unknown]
  - Sinus headache [Unknown]
  - Facial pain [Unknown]
  - Neuritis [Unknown]
  - Candida infection [Unknown]
  - Sleep apnoea syndrome [Unknown]
  - Dizziness [Unknown]
  - Hypertriglyceridaemia [Unknown]
  - Tachycardia [Unknown]
  - Oedema [Unknown]
  - Skin lesion [Unknown]
  - Chronic pigmented purpura [Unknown]
  - Actinic keratosis [Unknown]
  - Aortic valve sclerosis [Unknown]
  - QRS axis abnormal [Unknown]
  - Coronary artery disease [Unknown]
  - Arteriosclerosis coronary artery [Unknown]
  - Sick sinus syndrome [Unknown]
  - Sinus arrhythmia [Unknown]
  - Arrhythmia [Unknown]
  - Cerumen impaction [Unknown]
  - Foot deformity [Unknown]
  - Foot fracture [Unknown]
  - Wound [Unknown]
  - Gait disturbance [Unknown]
  - Haematoma [Unknown]
  - Depression [Unknown]
  - Exostosis [Unknown]
  - Ecchymosis [Unknown]
